FAERS Safety Report 15607795 (Version 3)
Quarter: 2018Q4

REPORT INFORMATION
  Report Type: Spontaneous
  Country: KE (occurrence: KE)
  Receive Date: 20181112
  Receipt Date: 20181219
  Transmission Date: 20190205
  Serious: Yes (Other)
  Sender: FDA-Public Use
  Company Number: KE-JNJFOC-20181100328

PATIENT
  Sex: Female

DRUGS (2)
  1. PALIPERIDONE PALMITATE [Suspect]
     Active Substance: PALIPERIDONE PALMITATE
     Indication: SCHIZOPHRENIA
     Route: 030
     Dates: start: 20181007
  2. SERTRALINE [Suspect]
     Active Substance: SERTRALINE HYDROCHLORIDE
     Indication: SCHIZOPHRENIA
     Dosage: ONCE IN MORNING
     Route: 048

REACTIONS (6)
  - Somatic hallucination [Recovered/Resolved]
  - Drug ineffective [Recovered/Resolved]
  - Depression [Recovered/Resolved]
  - Suicidal ideation [Recovered/Resolved]
  - Paranoia [Recovered/Resolved]
  - Hallucinations, mixed [Recovered/Resolved]
